FAERS Safety Report 12524173 (Version 1)
Quarter: 2016Q3

REPORT INFORMATION
  Report Type: Spontaneous
  Country: US (occurrence: US)
  Receive Date: 20160704
  Receipt Date: 20160704
  Transmission Date: 20161109
  Serious: Yes (Other)
  Sender: FDA-Public Use
  Company Number: US-GLENMARK PHARMACEUTICALS INC, USA.-2016GMK023035

PATIENT

DRUGS (2)
  1. LEVOTHYROXINE. [Concomitant]
     Active Substance: LEVOTHYROXINE
     Indication: PRODUCT USED FOR UNKNOWN INDICATION
     Route: 048
  2. NAPROXEN TABLETS USP [Suspect]
     Active Substance: NAPROXEN
     Indication: NECK PAIN
     Dosage: 1 TABLET TWICE DAILY AS NEEDED
     Route: 048
     Dates: start: 20160401, end: 20160501

REACTIONS (8)
  - Withdrawal syndrome [Recovered/Resolved]
  - Confusional state [Recovered/Resolved]
  - Alopecia [Recovered/Resolved]
  - Tinnitus [Recovered/Resolved]
  - Blood pressure diastolic increased [Recovered/Resolved]
  - Headache [Recovered/Resolved]
  - Mental impairment [Recovered/Resolved]
  - Memory impairment [Recovered/Resolved]

NARRATIVE: CASE EVENT DATE: 20160501
